FAERS Safety Report 5599358-X (Version None)
Quarter: 2008Q1

REPORT INFORMATION
  Report Type: 
  Country: None (occurrence: None)
  Receive Date: 20080122
  Receipt Date: 20080115
  Transmission Date: 20080703
  Serious: Yes (Other)
  Sender: FDA-Public Use
  Company Number: JP-PFIZER INC-2007108563

PATIENT
  Age: 78 Year
  Sex: Female

DRUGS (2)
  1. ATARAX [Suspect]
     Indication: RHINORRHOEA
     Route: 048
  2. TIMOLOL MALEATE [Concomitant]
     Route: 031

REACTIONS (1)
  - INTRAOCULAR PRESSURE INCREASED [None]
